FAERS Safety Report 24358288 (Version 1)
Quarter: 2024Q3

REPORT INFORMATION
  Report Type: Spontaneous
  Country: US (occurrence: US)
  Receive Date: 20240924
  Receipt Date: 20240924
  Transmission Date: 20241016
  Serious: Yes (Other)
  Sender: SANOFI AVENTIS
  Company Number: US-SA-2024SA274122

PATIENT
  Age: 2 Year

DRUGS (1)
  1. DUPIXENT [Suspect]
     Active Substance: DUPILUMAB
     Dosage: UNK UNK, QOW

REACTIONS (5)
  - Pain [Unknown]
  - Shock [Recovered/Resolved]
  - Cyanosis [Recovered/Resolved]
  - Eye movement disorder [Recovered/Resolved]
  - Gait disturbance [Recovered/Resolved]
